FAERS Safety Report 12947239 (Version 1)
Quarter: 2016Q4

REPORT INFORMATION
  Report Type: Spontaneous
  Country: US (occurrence: US)
  Receive Date: 20161116
  Receipt Date: 20161116
  Transmission Date: 20170207
  Serious: No
  Sender: FDA-Public Use
  Company Number: None

PATIENT
  Age: 60 Year
  Sex: Female
  Weight: 73.1 kg

DRUGS (1)
  1. GAMUNEX [Suspect]
     Active Substance: HUMAN IMMUNOGLOBULIN G
     Indication: LYMPHOMA
     Dosage: 29 GRAMS EVERY MONTH IVPB
     Dates: start: 20161017

REACTIONS (2)
  - Infusion related reaction [None]
  - Feeling cold [None]

NARRATIVE: CASE EVENT DATE: 20161017
